FAERS Safety Report 10459711 (Version 2)
Quarter: 2014Q3

REPORT INFORMATION
  Report Type: Spontaneous
  Country: US (occurrence: US)
  Receive Date: 20140917
  Receipt Date: 20140917
  Transmission Date: 20150326
  Serious: Yes (Hospitalization)
  Sender: FDA-Public Use
  Company Number: US-GLAXOSMITHKLINE-A0815821A

PATIENT
  Sex: Male

DRUGS (11)
  1. METFORMIN [Concomitant]
     Active Substance: METFORMIN HYDROCHLORIDE
     Dates: end: 200807
  2. ASPIRIN. [Concomitant]
     Active Substance: ASPIRIN
  3. ISORDIL [Concomitant]
     Active Substance: ISOSORBIDE DINITRATE
  4. AMARYL [Concomitant]
     Active Substance: GLIMEPIRIDE
  5. LISINOPRIL. [Concomitant]
     Active Substance: LISINOPRIL
  6. AVANDIA [Suspect]
     Active Substance: ROSIGLITAZONE MALEATE
     Indication: DIABETES MELLITUS
     Route: 048
     Dates: start: 2005, end: 2008
  7. AVANDAMET [Suspect]
     Active Substance: METFORMIN HYDROCHLORIDE\ROSIGLITAZONE MALEATE
     Indication: DIABETES MELLITUS
     Route: 048
     Dates: start: 200705, end: 2008
  8. COREG [Concomitant]
     Active Substance: CARVEDILOL
  9. DIGOXIN. [Concomitant]
     Active Substance: DIGOXIN
  10. ZETIA [Concomitant]
     Active Substance: EZETIMIBE
  11. LASIX [Concomitant]
     Active Substance: FUROSEMIDE

REACTIONS (10)
  - Mood altered [Unknown]
  - Coronary artery disease [Unknown]
  - Myocardial infarction [Unknown]
  - Hypertension [Unknown]
  - Myocardial ischaemia [Unknown]
  - Pleural effusion [Unknown]
  - Arterial disorder [Unknown]
  - Cerebrovascular accident [Unknown]
  - Cardiac failure congestive [Unknown]
  - Cardiovascular disorder [Unknown]
